FAERS Safety Report 9682232 (Version 2)
Quarter: 2013Q4

REPORT INFORMATION
  Report Type: Spontaneous
  Country: JP (occurrence: JP)
  Receive Date: 20131112
  Receipt Date: 20131215
  Transmission Date: 20140711
  Serious: Yes (Other)
  Sender: FDA-Public Use
  Company Number: JP-ROCHE-1300327

PATIENT
  Age: 79 Year
  Sex: Male

DRUGS (3)
  1. CEFTRIAXONE SODIUM [Suspect]
     Indication: PERICARDITIS INFECTIVE
     Route: 042
  2. CEFTRIAXONE SODIUM [Suspect]
     Route: 065
  3. AMIKACIN [Concomitant]
     Route: 065

REACTIONS (2)
  - Calculus urinary [Unknown]
  - Cholelithiasis [Unknown]
